FAERS Safety Report 8306469-4 (Version None)
Quarter: 2012Q2

REPORT INFORMATION
  Report Type: 
  Country: None (occurrence: None)
  Receive Date: 20120424
  Receipt Date: 20120416
  Transmission Date: 20120825
  Serious: Yes (Hospitalization, Other)
  Sender: FDA-Public Use
  Company Number: US-BIOGENIDEC-2012BI009567

PATIENT
  Age: 53 Year
  Sex: Female

DRUGS (3)
  1. AVONEX [Suspect]
     Indication: MULTIPLE SCLEROSIS
     Route: 030
     Dates: start: 20040416, end: 20041201
  2. AVONEX [Suspect]
     Route: 030
     Dates: start: 20111201, end: 20120301
  3. AVONEX [Suspect]
     Route: 030

REACTIONS (4)
  - URINARY TRACT INFECTION [None]
  - DEHYDRATION [None]
  - PLATELET COUNT DECREASED [None]
  - VIRAL INFECTION [None]
